FAERS Safety Report 8160884-0 (Version None)
Quarter: 2012Q1

REPORT INFORMATION
  Report Type: 
  Country: None (occurrence: None)
  Receive Date: 20120223
  Receipt Date: 20120214
  Transmission Date: 20120608
  Serious: Yes (Other)
  Sender: FDA-Public Use
  Company Number: US-ASTRAZENECA-2010SE44513

PATIENT
  Sex: Female

DRUGS (12)
  1. PRILOSEC [Suspect]
     Route: 048
  2. ASPIRIN [Concomitant]
  3. POTASSIUM CHLORIDE [Concomitant]
  4. TRICOR [Concomitant]
  5. RESTICOVES [Concomitant]
  6. MAGNESIUM [Concomitant]
  7. PILORLADATIN [Concomitant]
  8. PRAMIPEXOLE DIHYCHLLORIDE [Concomitant]
  9. NEXIUM [Suspect]
     Route: 048
  10. CARDIZEM [Concomitant]
  11. FUROSEMIDE [Concomitant]
  12. DEXILANT [Concomitant]

REACTIONS (6)
  - GASTROOESOPHAGEAL REFLUX DISEASE [None]
  - EPILEPSY [None]
  - DRUG INEFFECTIVE [None]
  - PHARYNGEAL MASS [None]
  - COUGH [None]
  - DRUG DOSE OMISSION [None]
